FAERS Safety Report 6245996-0 (Version None)
Quarter: 2009Q2

REPORT INFORMATION
  Report Type: 
  Country: None (occurrence: None)
  Receive Date: 20090626
  Receipt Date: 20081009
  Transmission Date: 20091009
  Serious: No
  Sender: FDA-Public Use
  Company Number: A0751335A

PATIENT
  Age: 48 Year
  Sex: Male

DRUGS (3)
  1. IMITREX [Suspect]
     Indication: DRUG USE FOR UNKNOWN INDICATION
     Route: 065
  2. ULTRAM [Concomitant]
  3. TRAZODONE HYDROCHLORIDE [Concomitant]

REACTIONS (1)
  - DRUG SCREEN POSITIVE [None]
